FAERS Safety Report 6201242-5 (Version None)
Quarter: 2009Q2

REPORT INFORMATION
  Report Type: 
  Country: None (occurrence: None)
  Receive Date: 20090526
  Receipt Date: 20090513
  Transmission Date: 20091009
  Serious: No
  Sender: FDA-Public Use
  Company Number: US-B.I. PHARMACEUTICALS,INC./RIDGEFIELD-2009-BP-06020BP

PATIENT
  Sex: Female

DRUGS (10)
  1. SPIRIVA [Suspect]
     Indication: CHRONIC OBSTRUCTIVE PULMONARY DISEASE
     Dosage: 18MCG
     Route: 055
     Dates: start: 20061001, end: 20081001
  2. ALBUTEROL [Concomitant]
     Indication: CHRONIC OBSTRUCTIVE PULMONARY DISEASE
     Route: 055
     Dates: start: 20060101
  3. ALBUTEROL [Concomitant]
     Indication: ASTHMA
  4. ASTHMA TWISTPOWDER [Concomitant]
     Indication: ASTHMA
     Dosage: 4PUF
     Route: 055
     Dates: start: 20060101
  5. XOPENEX [Concomitant]
     Indication: ASTHMA
     Route: 055
     Dates: start: 20060101
  6. CROMOLYN SODIUM [Concomitant]
     Indication: ASTHMA
     Route: 055
     Dates: start: 20060101
  7. LIPITOR [Concomitant]
     Indication: BLOOD CHOLESTEROL INCREASED
     Dosage: 20MG
     Route: 048
     Dates: start: 19700101
  8. PCN [Concomitant]
     Indication: LOWER RESPIRATORY TRACT INFECTION
     Route: 048
     Dates: start: 19800101
  9. LEVOTHYROXINE SODIUM [Concomitant]
     Indication: HYPOTHYROIDISM
     Dosage: .125MG
     Route: 048
     Dates: start: 19700101
  10. ATROVENT [Concomitant]
     Indication: CHRONIC OBSTRUCTIVE PULMONARY DISEASE
     Dosage: 4PUF
     Route: 055
     Dates: start: 20080101

REACTIONS (1)
  - TACHYCARDIA [None]
